FAERS Safety Report 5217167-8 (Version None)
Quarter: 2007Q1

REPORT INFORMATION
  Report Type: 
  Country: None (occurrence: None)
  Receive Date: 20070123
  Receipt Date: 20070123
  Transmission Date: 20070707
  Serious: Yes (Other)
  Sender: FDA-Public Use
  Company Number: None

PATIENT
  Sex: Female

DRUGS (4)
  1. SERTRALINE [Suspect]
     Indication: GENERALISED ANXIETY DISORDER
     Dosage: 200MG-250MG  DAILY  PO
     Route: 048
     Dates: start: 20061006, end: 20061117
  2. SERTRALINE [Suspect]
     Indication: MAJOR DEPRESSION
     Dosage: 200MG-250MG  DAILY  PO
     Route: 048
     Dates: start: 20061006, end: 20061117
  3. SERTRALINE [Suspect]
     Indication: PANIC DISORDER
     Dosage: 200MG-250MG  DAILY  PO
     Route: 048
     Dates: start: 20061006, end: 20061117
  4. CLONAZEPAM [Concomitant]

REACTIONS (9)
  - AFFECT LABILITY [None]
  - ANXIETY [None]
  - CRYING [None]
  - DRUG INEFFECTIVE [None]
  - HEADACHE [None]
  - INSOMNIA [None]
  - PANIC ATTACK [None]
  - THERAPEUTIC RESPONSE UNEXPECTED WITH DRUG SUBSTITUTION [None]
  - THINKING ABNORMAL [None]
